FAERS Safety Report 6247149-9 (Version None)
Quarter: 2009Q2

REPORT INFORMATION
  Report Type: 
  Country: None (occurrence: None)
  Receive Date: 20090624
  Receipt Date: 20090624
  Transmission Date: 20091009
  Serious: Yes (Life-Threatening)
  Sender: FDA-Public Use
  Company Number: None

PATIENT
  Sex: Male
  Weight: 83.1 kg

DRUGS (24)
  1. FENTANYL [Suspect]
     Indication: PAIN
     Dosage: 25 MCG/HR IV 50 MCG/HR IV
     Route: 042
     Dates: start: 20090326, end: 20090330
  2. FENTANYL [Suspect]
     Indication: PAIN
     Dosage: 25 MCG/HR IV 50 MCG/HR IV
     Route: 042
     Dates: start: 20090330, end: 20090402
  3. HEPARIN [Concomitant]
  4. DOCUSATE [Concomitant]
  5. DOXAZOSIN MESYLATE [Concomitant]
  6. METOPROLOL SUCCINATE [Concomitant]
  7. PROVIGIL [Concomitant]
  8. PAROXETINE HCL [Concomitant]
  9. APAP TAB [Concomitant]
  10. LACTOBACILLUS [Concomitant]
  11. MAGNESIUM SULFATE [Concomitant]
  12. PIPERACILLIN [Concomitant]
  13. TAZOBACTAM [Concomitant]
  14. ALUMINUM [Concomitant]
  15. MAG [Concomitant]
  16. HYDROXIDE [Concomitant]
  17. SIMETHICONE [Concomitant]
  18. POLYETHYLENE GLYCOL [Concomitant]
  19. SENNA [Concomitant]
  20. BISACODYL [Concomitant]
  21. LANSOPRAZOLE [Concomitant]
  22. CEFAZOLIN [Concomitant]
  23. LEVETIRACETAM [Concomitant]
  24. MAALOX [Concomitant]

REACTIONS (1)
  - DEPRESSED LEVEL OF CONSCIOUSNESS [None]
